FAERS Safety Report 10674066 (Version 1)
Quarter: 2014Q4

REPORT INFORMATION
  Report Type: Spontaneous
  Country: KR (occurrence: None)
  Receive Date: 20141222
  Receipt Date: 20141222
  Transmission Date: 20150529
  Serious: Yes (Other)
  Sender: FDA-Public Use
  Company Number: 2014COR00146

PATIENT

DRUGS (1)
  1. GLIMEPIRIDE (GLIMEPIRIDE) UNKNOWN [Suspect]
     Active Substance: GLIMEPIRIDE

REACTIONS (1)
  - Oesophagitis [None]
